FAERS Safety Report 9157566 (Version 2)
Quarter: 2013Q1

REPORT INFORMATION
  Report Type: Spontaneous
  Country: US (occurrence: US)
  Receive Date: 20130312
  Receipt Date: 20130319
  Transmission Date: 20140127
  Serious: Yes (Other)
  Sender: FDA-Public Use
  Company Number: US-RB-050769-13

PATIENT
  Age: 33 Year
  Sex: Male

DRUGS (2)
  1. MUCINEX D [Suspect]
     Indication: NASOPHARYNGITIS
     Dosage: TOOK ONE TABLET THE DAY BEFORE THEN THE NEXT NIGHT 2 TABLETS
     Route: 048
     Dates: start: 201302
  2. MUCINEX D [Suspect]

REACTIONS (3)
  - Hernia [Not Recovered/Not Resolved]
  - Bronchitis [Unknown]
  - Cough [Unknown]
